FAERS Safety Report 6446701-5 (Version None)
Quarter: 2009Q4

REPORT INFORMATION
  Report Type: 
  Country: None (occurrence: None)
  Receive Date: 20091119
  Receipt Date: 20091113
  Transmission Date: 20100525
  Serious: Yes (Hospitalization)
  Sender: FDA-Public Use
  Company Number: B0590553A

PATIENT
  Sex: Female

DRUGS (4)
  1. VALTREX [Suspect]
     Indication: HERPES ZOSTER
     Dosage: 500MG THREE TIMES PER DAY
     Route: 048
     Dates: start: 20090817, end: 20090824
  2. LOXONIN [Concomitant]
     Indication: ANALGESIC THERAPY
     Dosage: 60MG THREE TIMES PER DAY
     Route: 048
     Dates: start: 20090817, end: 20090824
  3. METHYCOBAL [Concomitant]
     Indication: NERVOUS SYSTEM DISORDER
     Dosage: 1500MCG PER DAY
     Route: 048
     Dates: start: 20090817, end: 20090824
  4. MUCOSTA [Concomitant]
     Dosage: 300MG PER DAY
     Route: 048
     Dates: start: 20090817, end: 20090824

REACTIONS (8)
  - ALTERED STATE OF CONSCIOUSNESS [None]
  - ATRIAL FIBRILLATION [None]
  - ENCEPHALOPATHY [None]
  - GAIT DISTURBANCE [None]
  - HEART RATE INCREASED [None]
  - HEMIPARESIS [None]
  - RENAL DISORDER [None]
  - RENAL FAILURE ACUTE [None]
